FAERS Safety Report 5155480-3 (Version None)
Quarter: 2006Q4

REPORT INFORMATION
  Report Type: 
  Country: None (occurrence: None)
  Receive Date: 20061121
  Receipt Date: 20061114
  Transmission Date: 20070319
  Serious: Yes (Other)
  Sender: FDA-Public Use
  Company Number: BF-BOEHRINGER INGELHEIM PHARMACEUTICALS, INC.-2006-DE-06025GD

PATIENT
  Sex: Female

DRUGS (1)
  1. NEVIRAPINE [Suspect]
     Indication: PROPHYLAXIS AGAINST HIV INFECTION
     Dosage: SINGLE DOSE

REACTIONS (4)
  - DRUG RESISTANCE [None]
  - HIV INFECTION [None]
  - VERTICAL INFECTION TRANSMISSION [None]
  - VIRAL MUTATION IDENTIFIED [None]
